FAERS Safety Report 8830761 (Version 1)
Quarter: 2012Q4

REPORT INFORMATION
  Report Type: 
  Country: US (occurrence: US)
  Receive Date: 20121009
  Receipt Date: 20121009
  Transmission Date: 20130627
  Serious: Yes (Other)
  Sender: FDA-Public Use
  Company Number: US-PFIZER INC-2012246203

PATIENT
  Sex: Female

DRUGS (4)
  1. NEURONTIN [Suspect]
     Indication: PERIPHERAL NERVE INJURY
     Dosage: UNK
     Dates: start: 2007, end: 2007
  2. NEURONTIN [Suspect]
     Indication: NERVE INJURY
  3. NORCO [Concomitant]
     Indication: PAIN
     Dosage: UNK
  4. METHADONE [Concomitant]
     Indication: PAIN
     Dosage: UNK

REACTIONS (3)
  - Suicidal ideation [Recovered/Resolved]
  - Malaise [Recovered/Resolved]
  - Head discomfort [Recovered/Resolved]
